FAERS Safety Report 5381894-2 (Version None)
Quarter: 2007Q3

REPORT INFORMATION
  Report Type: 
  Country: None (occurrence: None)
  Receive Date: 20070709
  Receipt Date: 20070706
  Transmission Date: 20080115
  Serious: Yes (Death, Hospitalization)
  Sender: FDA-Public Use
  Company Number: ES-BRISTOL-MYERS SQUIBB COMPANY-13798798

PATIENT
  Age: 55 Year
  Sex: Male

DRUGS (19)
  1. CISPLATIN [Suspect]
     Indication: NON-SMALL CELL LUNG CANCER
     Route: 042
     Dates: start: 20070510, end: 20070510
  2. GEMCITABINE HCL [Suspect]
     Indication: NON-SMALL CELL LUNG CANCER
     Route: 042
     Dates: start: 20070510, end: 20070510
  3. SU-011,248 [Suspect]
     Indication: NON-SMALL CELL LUNG CANCER
     Route: 048
     Dates: start: 20070512, end: 20070516
  4. RADIATION THERAPY [Suspect]
     Indication: BONE DISORDER
     Dates: start: 20070430
  5. DURAGESIC-100 [Concomitant]
     Route: 062
     Dates: start: 20070410
  6. METAMIZOLE [Concomitant]
     Route: 048
     Dates: start: 20070421
  7. OMEPRAZOLE [Concomitant]
     Route: 048
     Dates: start: 20070404
  8. FORTECORTIN [Concomitant]
     Route: 048
     Dates: start: 20070404
  9. DUPHALAC [Concomitant]
     Route: 048
     Dates: start: 20070407
  10. DICLOFENAC [Concomitant]
     Route: 048
     Dates: start: 20070410
  11. ACTIQ [Concomitant]
     Route: 048
     Dates: start: 20070427
  12. GABAPENTIN [Concomitant]
     Route: 048
     Dates: start: 20070405
  13. SALMETEROL [Concomitant]
     Route: 048
     Dates: start: 20070405
  14. PULMICORT [Concomitant]
     Route: 055
     Dates: start: 20070405
  15. ATROVENT [Concomitant]
     Route: 055
     Dates: start: 20070405
  16. SEVREDOL [Concomitant]
     Dates: start: 20070405
  17. ENOXAPARIN SODIUM [Concomitant]
     Dates: start: 20070404
  18. METOCLOPRAMIDE [Concomitant]
     Dates: start: 20070405
  19. PARACETAMOL [Concomitant]
     Dates: start: 20070422

REACTIONS (21)
  - ALANINE AMINOTRANSFERASE INCREASED [None]
  - BLOOD CALCIUM DECREASED [None]
  - BLOOD FIBRINOGEN INCREASED [None]
  - BLOOD POTASSIUM DECREASED [None]
  - BLOOD PRESSURE DECREASED [None]
  - BLOOD SODIUM DECREASED [None]
  - DEHYDRATION [None]
  - DIARRHOEA [None]
  - DYSPNOEA [None]
  - ENTERITIS [None]
  - HAEMATOCRIT DECREASED [None]
  - HAEMOGLOBIN DECREASED [None]
  - INTESTINAL OBSTRUCTION [None]
  - NEUTROPENIA [None]
  - PNEUMONIA [None]
  - PROTEIN TOTAL DECREASED [None]
  - PROTHROMBIN TIME SHORTENED [None]
  - RED BLOOD CELL COUNT DECREASED [None]
  - RED CELL DISTRIBUTION WIDTH INCREASED [None]
  - SEPTIC SHOCK [None]
  - WHITE BLOOD CELL COUNT DECREASED [None]
